FAERS Safety Report 8436173-3 (Version None)
Quarter: 2012Q2

REPORT INFORMATION
  Report Type: 
  Country: None (occurrence: None)
  Receive Date: 20120614
  Receipt Date: 20120606
  Transmission Date: 20120825
  Serious: Yes (Other)
  Sender: FDA-Public Use
  Company Number: US-PFIZER INC-2012124695

PATIENT
  Sex: Male

DRUGS (1)
  1. TOVIAZ [Suspect]
     Dosage: UNK
     Dates: start: 20120426, end: 20120511

REACTIONS (5)
  - TONGUE DRY [None]
  - DRY MOUTH [None]
  - DYSPHAGIA [None]
  - THROAT TIGHTNESS [None]
  - HICCUPS [None]
